FAERS Safety Report 21402369 (Version 1)
Quarter: 2022Q4

REPORT INFORMATION
  Report Type: Other
  Country: GB (occurrence: GB)
  Receive Date: 20221003
  Receipt Date: 20221003
  Transmission Date: 20230112
  Serious: No
  Sender: FDA-Public Use
  Company Number: GB-MHRA-MED-202209191541435860-DKFPM

PATIENT
  Sex: Female

DRUGS (1)
  1. SERTRALINE [Suspect]
     Active Substance: SERTRALINE HYDROCHLORIDE
     Indication: Depression
     Dosage: 50 MG, QD (TABLET, UNCOATED)
     Route: 065
     Dates: start: 20220711, end: 20220816

REACTIONS (1)
  - Herpes simplex [Recovering/Resolving]

NARRATIVE: CASE EVENT DATE: 20220809
